FAERS Safety Report 22277634 (Version 2)
Quarter: 2023Q2

REPORT INFORMATION
  Report Type: Spontaneous
  Country: US (occurrence: US)
  Receive Date: 20230503
  Receipt Date: 20230504
  Transmission Date: 20230721
  Serious: No
  Sender: FDA-Public Use
  Company Number: US-GSK-US2023063007

PATIENT
  Age: 65 Year
  Sex: Female
  Weight: 67.13 kg

DRUGS (1)
  1. BENLYSTA [Suspect]
     Active Substance: BELIMUMAB
     Indication: Product used for unknown indication
     Dosage: UNK

REACTIONS (1)
  - Product dose omission issue [Unknown]

NARRATIVE: CASE EVENT DATE: 20230405
